FAERS Safety Report 4297589-2 (Version None)
Quarter: 2004Q1

REPORT INFORMATION
  Report Type: 
  Country: None (occurrence: None)
  Receive Date: 20040213
  Receipt Date: 20040202
  Transmission Date: 20041129
  Serious: Yes (Death, Other)
  Sender: FDA-Public Use
  Company Number: USA-2004-0012725

PATIENT
  Age: 53 Year
  Sex: Female

DRUGS (3)
  1. OXYCONTIN [Suspect]
     Indication: PAIN
     Dosage: 80 MG, BID
  2. ALCOHOL (ETHANOL) [Suspect]
  3. COCAINE(COCAINE) [Suspect]

REACTIONS (3)
  - ALCOHOL USE [None]
  - DRUG ABUSER [None]
  - MULTIPLE DRUG OVERDOSE [None]
